FAERS Safety Report 8265550-9 (Version None)
Quarter: 2012Q2

REPORT INFORMATION
  Report Type: 
  Country: None (occurrence: None)
  Receive Date: 20120406
  Receipt Date: 20120402
  Transmission Date: 20120825
  Serious: Yes (Hospitalization, Other)
  Sender: FDA-Public Use
  Company Number: CA-PFIZER INC-2012084433

PATIENT
  Age: 68 Year
  Sex: Male

DRUGS (12)
  1. NOVORAPID [Suspect]
     Indication: TYPE 2 DIABETES MELLITUS
     Dosage: 45 IU, UNK
     Dates: start: 20110401, end: 20111212
  2. METRONIDAZOLE [Concomitant]
  3. METHOTREXATE SODIUM [Suspect]
  4. LINEZOLID [Suspect]
     Dosage: UNK
     Dates: start: 20111115, end: 20111201
  5. TETRACYCLINE HYDROCHLORIDE [Suspect]
     Indication: SKIN ULCER
  6. BLINDED THERAPY [Suspect]
     Indication: TYPE 2 DIABETES MELLITUS
     Dosage: SAXAGLIPTIN/PLACEBO
     Dates: start: 20101116, end: 20111012
  7. VENTOLIN [Concomitant]
  8. ATROVENT [Concomitant]
  9. VANCOMYCIN [Concomitant]
  10. METFORMIN HYDROCHLORIDE [Suspect]
     Indication: TYPE 2 DIABETES MELLITUS
     Dosage: 1000 MG, UNK
     Dates: start: 20111205
  11. SEPTRA [Concomitant]
  12. NPH INSULIN [Suspect]
     Indication: TYPE 2 DIABETES MELLITUS
     Dosage: 90 IU, UNK

REACTIONS (5)
  - HAEMATURIA [None]
  - PHARYNGEAL INFLAMMATION [None]
  - ANAEMIA [None]
  - PANCYTOPENIA [None]
  - THROMBOCYTOPENIA [None]
